FAERS Safety Report 6394601-1 (Version None)
Quarter: 2009Q4

REPORT INFORMATION
  Report Type: 
  Country: None (occurrence: None)
  Receive Date: 20091009
  Receipt Date: 20090927
  Transmission Date: 20100525
  Serious: Yes (Other)
  Sender: FDA-Public Use
  Company Number: US-JNJFOC-20091000361

PATIENT
  Age: 21 Month
  Sex: Male
  Weight: 12.7 kg

DRUGS (1)
  1. CHILDREN'S TYLENOL PLUS COLD GRAPE [Suspect]
     Indication: RHINORRHOEA
     Route: 048
     Dates: start: 20090925, end: 20090927

REACTIONS (5)
  - DEHYDRATION [None]
  - DIARRHOEA [None]
  - HYPERSENSITIVITY [None]
  - VOMITING [None]
  - WRONG DRUG ADMINISTERED [None]
